FAERS Safety Report 5116616-3 (Version None)
Quarter: 2006Q3

REPORT INFORMATION
  Report Type: 
  Country: None (occurrence: None)
  Receive Date: 20060928
  Receipt Date: 20060920
  Transmission Date: 20061208
  Serious: Yes (Other)
  Sender: FDA-Public Use
  Company Number: FR-AVENTIS-200613255FR

PATIENT
  Age: 35 Year
  Sex: Female

DRUGS (2)
  1. FLAGYL [Suspect]
     Indication: TOOTH ABSCESS
     Route: 048
     Dates: start: 20060901
  2. AUGMENTIN [Concomitant]
     Indication: TOOTH ABSCESS
     Dates: start: 20060901

REACTIONS (3)
  - CONFUSIONAL STATE [None]
  - DISORIENTATION [None]
  - MEMORY IMPAIRMENT [None]
